FAERS Safety Report 24385854 (Version 1)
Quarter: 2024Q4

REPORT INFORMATION
  Report Type: Spontaneous
  Country: CA (occurrence: CA)
  Receive Date: 20241001
  Receipt Date: 20241001
  Transmission Date: 20250114
  Serious: Yes (Hospitalization, Other)
  Sender: ALEXION PHARMACEUTICALS
  Company Number: CA-AstraZeneca-CH-00711391A

PATIENT
  Age: 54 Year

DRUGS (48)
  1. QUETIAPINE FUMARATE [Suspect]
     Active Substance: QUETIAPINE FUMARATE
     Indication: Depression
  2. QUETIAPINE FUMARATE [Suspect]
     Active Substance: QUETIAPINE FUMARATE
     Indication: Bipolar disorder
  3. QUETIAPINE FUMARATE [Suspect]
     Active Substance: QUETIAPINE FUMARATE
  4. QUETIAPINE FUMARATE [Suspect]
     Active Substance: QUETIAPINE FUMARATE
  5. QUETIAPINE FUMARATE [Suspect]
     Active Substance: QUETIAPINE FUMARATE
  6. QUETIAPINE FUMARATE [Suspect]
     Active Substance: QUETIAPINE FUMARATE
  7. QUETIAPINE FUMARATE [Suspect]
     Active Substance: QUETIAPINE FUMARATE
  8. QUETIAPINE FUMARATE [Suspect]
     Active Substance: QUETIAPINE FUMARATE
  9. ATAZANAVIR SULFATE [Suspect]
     Active Substance: ATAZANAVIR SULFATE
  10. ATAZANAVIR SULFATE [Suspect]
     Active Substance: ATAZANAVIR SULFATE
     Route: 065
  11. BUPROPION HYDROBROMIDE [Suspect]
     Active Substance: BUPROPION HYDROBROMIDE
  12. BUPROPION HYDROBROMIDE [Suspect]
     Active Substance: BUPROPION HYDROBROMIDE
     Route: 065
  13. CELECOXIB [Suspect]
     Active Substance: CELECOXIB
  14. CELECOXIB [Suspect]
     Active Substance: CELECOXIB
     Route: 065
  15. CITALOPRAM [Suspect]
     Active Substance: CITALOPRAM
  16. CITALOPRAM [Suspect]
     Active Substance: CITALOPRAM
     Route: 065
  17. CITALOPRAM HYDROBROMIDE [Suspect]
     Active Substance: CITALOPRAM HYDROBROMIDE
  18. CITALOPRAM HYDROBROMIDE [Suspect]
     Active Substance: CITALOPRAM HYDROBROMIDE
     Route: 065
  19. CLONAZEPAM [Suspect]
     Active Substance: CLONAZEPAM
  20. CLONAZEPAM [Suspect]
     Active Substance: CLONAZEPAM
     Route: 065
  21. EMTRIVA [Suspect]
     Active Substance: EMTRICITABINE
  22. EMTRIVA [Suspect]
     Active Substance: EMTRICITABINE
     Route: 065
  23. ISENTRESS [Suspect]
     Active Substance: RALTEGRAVIR POTASSIUM
  24. ISENTRESS [Suspect]
     Active Substance: RALTEGRAVIR POTASSIUM
     Route: 065
  25. KALETRA [Suspect]
     Active Substance: LOPINAVIR\RITONAVIR
  26. KALETRA [Suspect]
     Active Substance: LOPINAVIR\RITONAVIR
     Route: 065
  27. LAMIVUDINE [Suspect]
     Active Substance: LAMIVUDINE
  28. LAMIVUDINE [Suspect]
     Active Substance: LAMIVUDINE
     Route: 065
  29. RALTEGRAVIR POTASSIUM [Suspect]
     Active Substance: RALTEGRAVIR POTASSIUM
  30. RALTEGRAVIR POTASSIUM [Suspect]
     Active Substance: RALTEGRAVIR POTASSIUM
     Route: 065
  31. RISPERIDONE [Suspect]
     Active Substance: RISPERIDONE
  32. RISPERIDONE [Suspect]
     Active Substance: RISPERIDONE
     Route: 065
  33. RITONAVIR [Suspect]
     Active Substance: RITONAVIR
  34. RITONAVIR [Suspect]
     Active Substance: RITONAVIR
     Route: 065
  35. SERTRALINE HYDROCHLORIDE [Suspect]
     Active Substance: SERTRALINE HYDROCHLORIDE
  36. SERTRALINE HYDROCHLORIDE [Suspect]
     Active Substance: SERTRALINE HYDROCHLORIDE
     Route: 065
  37. VALPROATE SODIUM [Suspect]
     Active Substance: VALPROATE SODIUM
  38. VALPROATE SODIUM [Suspect]
     Active Substance: VALPROATE SODIUM
     Route: 065
  39. SUSTIVA [Suspect]
     Active Substance: EFAVIRENZ
  40. SUSTIVA [Suspect]
     Active Substance: EFAVIRENZ
     Route: 065
  41. ENFUVIRTIDE [Suspect]
     Active Substance: ENFUVIRTIDE
  42. ENFUVIRTIDE [Suspect]
     Active Substance: ENFUVIRTIDE
     Route: 065
  43. VALPROATE SODIUM [Suspect]
     Active Substance: VALPROATE SODIUM
  44. VALPROATE SODIUM [Suspect]
     Active Substance: VALPROATE SODIUM
     Route: 065
  45. VIREAD [Suspect]
     Active Substance: TENOFOVIR DISOPROXIL FUMARATE
  46. VIREAD [Suspect]
     Active Substance: TENOFOVIR DISOPROXIL FUMARATE
     Route: 065
  47. ZOPICLONE [Suspect]
     Active Substance: ZOPICLONE
  48. ZOPICLONE [Suspect]
     Active Substance: ZOPICLONE
     Route: 065

REACTIONS (10)
  - Anxiety [Unknown]
  - Depression suicidal [Unknown]
  - Depressive symptom [Unknown]
  - Paranoia [Unknown]
  - Product use in unapproved indication [Unknown]
  - Psychiatric decompensation [Unknown]
  - Psychomotor skills impaired [Unknown]
  - Psychotic disorder [Unknown]
  - Suicidal ideation [Unknown]
  - Tearfulness [Unknown]
